FAERS Safety Report 8601725-4 (Version None)
Quarter: 2012Q3

REPORT INFORMATION
  Report Type: 
  Country: None (occurrence: None)
  Receive Date: 20120817
  Receipt Date: 20120214
  Transmission Date: 20120928
  Serious: No
  Sender: FDA-Public Use
  Company Number: US-BRISTOL-MYERS SQUIBB COMPANY-16398547

PATIENT
  Age: 45 Year
  Sex: Male

DRUGS (6)
  1. LISINOPRIL [Concomitant]
  2. ASPIRIN [Concomitant]
  3. SPRYCEL [Suspect]
     Indication: CHRONIC MYELOID LEUKAEMIA
     Dates: start: 20111101
  4. ATIVAN [Concomitant]
  5. COREG [Concomitant]
  6. WELLBUTRIN [Concomitant]

REACTIONS (1)
  - RASH [None]
